FAERS Safety Report 4973850-0 (Version None)
Quarter: 2006Q2

REPORT INFORMATION
  Report Type: 
  Country: None (occurrence: None)
  Receive Date: 20060414
  Receipt Date: 20051214
  Transmission Date: 20061013
  Serious: Yes (Hospitalization)
  Sender: FDA-Public Use
  Company Number: US-MERCK-0512USA02315

PATIENT
  Age: 66 Year
  Sex: Female
  Weight: 91 kg

DRUGS (1)
  1. VIOXX [Suspect]
     Indication: ARTHRITIS
     Route: 048
     Dates: start: 20000103, end: 20031211

REACTIONS (7)
  - ANOXIC ENCEPHALOPATHY [None]
  - CHEST PAIN [None]
  - FALL [None]
  - MYOCARDIAL INFARCTION [None]
  - PNEUMONIA ASPIRATION [None]
  - SLEEP APNOEA SYNDROME [None]
  - VENTRICULAR FIBRILLATION [None]
